FAERS Safety Report 12045548 (Version 2)
Quarter: 2016Q1

REPORT INFORMATION
  Report Type: Report from Study
  Country: NO (occurrence: NO)
  Receive Date: 20160208
  Receipt Date: 20160219
  Transmission Date: 20160526
  Serious: Yes (Other)
  Sender: FDA-Public Use
  Company Number: NO-BAYER-2016-010503

PATIENT
  Age: 47 Year
  Sex: Female

DRUGS (5)
  1. XENICAL [Concomitant]
     Active Substance: ORLISTAT
     Dosage: UNK
  2. MIRENA [Suspect]
     Active Substance: LEVONORGESTREL
     Indication: CONTRACEPTION
     Dosage: 20 MCG/24HR, CONT
     Route: 015
     Dates: start: 20160115, end: 20160115
  3. LIPITOR [Concomitant]
     Active Substance: ATORVASTATIN CALCIUM
     Dosage: UNK
  4. MIRENA [Suspect]
     Active Substance: LEVONORGESTREL
     Indication: CONTRACEPTION
     Dosage: 20 MCG/24HR, CONT
     Route: 015
  5. NEXIUM [Concomitant]
     Active Substance: ESOMEPRAZOLE MAGNESIUM
     Dosage: UNK

REACTIONS (7)
  - Device difficult to use [None]
  - Erythroplasia [None]
  - Procedural haemorrhage [None]
  - Procedural pain [None]
  - Syncope [None]
  - Amenorrhoea [None]
  - Vaginal cyst [Recovered/Resolved]

NARRATIVE: CASE EVENT DATE: 20160115
